FAERS Safety Report 11483655 (Version 1)
Quarter: 2015Q3

REPORT INFORMATION
  Report Type: Spontaneous
  Country: US (occurrence: US)
  Receive Date: 20150903
  Receipt Date: 20150903
  Transmission Date: 20151125
  Serious: No
  Sender: FDA-Public Use
  Company Number: US-ELI_LILLY_AND_COMPANY-US201207005181

PATIENT
  Age: 50 Year
  Sex: Female

DRUGS (2)
  1. WATER PILLS [Concomitant]
     Active Substance: UNSPECIFIED INGREDIENT
     Dosage: UNK, UNKNOWN
     Route: 065
  2. CYMBALTA [Suspect]
     Active Substance: DULOXETINE HYDROCHLORIDE
     Indication: DEPRESSION
     Dosage: 30 MG, QD
     Route: 065
     Dates: start: 201111, end: 2012

REACTIONS (5)
  - Confusional state [Unknown]
  - Intentional product misuse [Unknown]
  - Dizziness [Unknown]
  - Drug withdrawal syndrome [Unknown]
  - Fatigue [Unknown]
